FAERS Safety Report 6127439-0 (Version None)
Quarter: 2009Q1

REPORT INFORMATION
  Report Type: 
  Country: None (occurrence: None)
  Receive Date: 20090323
  Receipt Date: 20090309
  Transmission Date: 20090719
  Serious: Yes (Other)
  Sender: FDA-Public Use
  Company Number: US-JNJFOC-20090302630

PATIENT
  Sex: Male
  Weight: 117.94 kg

DRUGS (6)
  1. TYLENOL (CAPLET) [Suspect]
     Indication: PAIN IN EXTREMITY
     Dosage: 15,600-23,400 MG PER DAY
     Route: 048
  2. TYLENOL (CAPLET) [Suspect]
     Indication: BACK PAIN
     Dosage: 7800-9750 MG PER DAY
     Route: 048
  3. TYLENOL (CAPLET) [Suspect]
     Indication: INSOMNIA
  4. SIMVASTATIN [Concomitant]
     Indication: BLOOD CHOLESTEROL ABNORMAL
  5. BENAZEPRIL HYDROCHLORIDE [Concomitant]
     Indication: BLOOD PRESSURE ABNORMAL
  6. GLIPIZIDE [Concomitant]
     Indication: DIABETES MELLITUS

REACTIONS (2)
  - DRUG ADMINISTRATION ERROR [None]
  - INTENTIONAL OVERDOSE [None]
